FAERS Safety Report 18747588 (Version 1)
Quarter: 2021Q1

REPORT INFORMATION
  Report Type: Report from Study
  Country: MX (occurrence: MX)
  Receive Date: 20210115
  Receipt Date: 20210115
  Transmission Date: 20210419
  Serious: Yes (Life-Threatening, Hospitalization)
  Sender: FDA-Public Use
  Company Number: MX-JNJFOC-20210114993

PATIENT
  Age: 65 Year
  Sex: Female
  Weight: 78 kg

DRUGS (1)
  1. SIMPONI [Suspect]
     Active Substance: GOLIMUMAB
     Indication: RHEUMATOID ARTHRITIS
     Route: 058
     Dates: start: 20180130

REACTIONS (2)
  - COVID-19 [Unknown]
  - Dependence on respirator [Unknown]

NARRATIVE: CASE EVENT DATE: 2020
